FAERS Safety Report 9329604 (Version 1)
Quarter: 2013Q2

REPORT INFORMATION
  Report Type: Spontaneous
  Country: US (occurrence: US)
  Receive Date: 20130604
  Receipt Date: 20130604
  Transmission Date: 20140414
  Serious: No
  Sender: FDA-Public Use
  Company Number: US-SANOFI-AVENTIS-2013SA000252

PATIENT
  Age: 66 Year
  Sex: Female

DRUGS (3)
  1. LANTUS SOLOSTAR [Suspect]
     Indication: TYPE 2 DIABETES MELLITUS
     Dosage: TAKING THE LANTUS IN THE AM AND 3 WEEKS LATER SHE SWITCHED TO TAKING IT AT NIGHT DOSE:10 UNIT(S)
     Route: 051
     Dates: start: 201210
  2. SOLOSTAR [Suspect]
     Indication: TYPE 2 DIABETES MELLITUS
  3. NAPROXEN [Concomitant]

REACTIONS (7)
  - Headache [Unknown]
  - Cold sweat [Unknown]
  - Pruritus generalised [Unknown]
  - Insomnia [Unknown]
  - Abnormal dreams [Unknown]
  - Weight decreased [Unknown]
  - Blood glucose increased [Unknown]
